FAERS Safety Report 7286350-2 (Version None)
Quarter: 2011Q1

REPORT INFORMATION
  Report Type: 
  Country: None (occurrence: None)
  Receive Date: 20110210
  Receipt Date: 20110128
  Transmission Date: 20110831
  Serious: Yes (Hospitalization)
  Sender: FDA-Public Use
  Company Number: US-JNJFOC-20110200362

PATIENT
  Sex: Female

DRUGS (2)
  1. TYLENOL COUGH AND SORE THROAT DAYTIME COOL BURST BERRY [Suspect]
     Indication: PRODUCT USED FOR UNKNOWN INDICATION
     Route: 048
  2. TYLENOL COUGH + SORE THROAT NIGHTTIME COOL BURST [Suspect]
     Indication: PRODUCT USED FOR UNKNOWN INDICATION
     Route: 048

REACTIONS (2)
  - URTICARIA [None]
  - HYPERSENSITIVITY [None]
